FAERS Safety Report 7511463-7 (Version None)
Quarter: 2011Q2

REPORT INFORMATION
  Report Type: 
  Country: None (occurrence: None)
  Receive Date: 20110531
  Receipt Date: 20110517
  Transmission Date: 20111010
  Serious: Yes (Other)
  Sender: FDA-Public Use
  Company Number: ES-JNJFOC-20110511064

PATIENT

DRUGS (3)
  1. LEVOFLOXACIN [Suspect]
     Indication: PROPHYLAXIS
     Route: 065
  2. PIPERACILLIN AND TAZOBACTAM [Suspect]
     Indication: NEUTROPHIL COUNT DECREASED
     Route: 065
  3. FLUCONAZOLE [Suspect]
     Indication: PROPHYLAXIS
     Route: 065

REACTIONS (2)
  - RENAL FAILURE [None]
  - BACTERAEMIA [None]
